FAERS Safety Report 6162433-5 (Version None)
Quarter: 2009Q2

REPORT INFORMATION
  Report Type: 
  Country: None (occurrence: None)
  Receive Date: 20090421
  Receipt Date: 20090409
  Transmission Date: 20091009
  Serious: Yes (Other)
  Sender: FDA-Public Use
  Company Number: US-PFIZER INC-2009199819

PATIENT
  Sex: Male
  Weight: 81.179 kg

DRUGS (5)
  1. ZOLOFT [Suspect]
     Indication: BIPOLAR DISORDER
     Dosage: FREQUENCY: 2X/DAY, EVERY DAY;
     Dates: start: 20090101
  2. ADDERALL 10 [Suspect]
     Indication: MEMORY IMPAIRMENT
     Dosage: 30 MG, 1X/DAY
     Dates: start: 20090408
  3. AMBIEN [Suspect]
     Indication: INSOMNIA
     Dosage: 10 MG, 1X/DAY
     Dates: start: 20090408
  4. WELLBUTRIN [Concomitant]
     Dates: start: 20081201, end: 20081201
  5. VITAMINS [Concomitant]
     Dosage: UNK

REACTIONS (4)
  - DIZZINESS [None]
  - GAIT DISTURBANCE [None]
  - INSOMNIA [None]
  - MEMORY IMPAIRMENT [None]
